FAERS Safety Report 6704754-0 (Version None)
Quarter: 2010Q2

REPORT INFORMATION
  Report Type: 
  Country: None (occurrence: None)
  Receive Date: 20100430
  Receipt Date: 20091117
  Transmission Date: 20101027
  Serious: No
  Sender: FDA-Public Use
  Company Number: US-BAUSCH-2009BL006103

PATIENT
  Age: 67 Year
  Sex: Female

DRUGS (2)
  1. ALREX [Suspect]
     Indication: EYE PRURITUS
     Route: 047
     Dates: start: 20091101, end: 20091102
  2. ALREX [Suspect]
     Indication: EYE SWELLING
     Route: 047
     Dates: start: 20091101, end: 20091102

REACTIONS (8)
  - DRY EYE [None]
  - DYSPHONIA [None]
  - EYE IRRITATION [None]
  - EYE PAIN [None]
  - HEADACHE [None]
  - OROPHARYNGEAL PAIN [None]
  - RHINORRHOEA [None]
  - SNEEZING [None]
